FAERS Safety Report 19877311 (Version 1)
Quarter: 2021Q3

REPORT INFORMATION
  Report Type: Spontaneous
  Country: SE (occurrence: SE)
  Receive Date: 20210923
  Receipt Date: 20210923
  Transmission Date: 20211014
  Serious: Yes (Hospitalization)
  Sender: FDA-Public Use
  Company Number: SE-PFIZER INC-202101215734

PATIENT
  Age: 50 Year
  Sex: Female
  Weight: 51 kg

DRUGS (8)
  1. RAMIPRIL. [Concomitant]
     Active Substance: RAMIPRIL
     Dosage: 5 MG 1X1
     Route: 048
  2. COMIRNATY [Concomitant]
     Active Substance: TOZINAMERAN
     Dosage: DOSE 1, SINGLE
     Dates: start: 20210519, end: 20210519
  3. PROVERA [Suspect]
     Active Substance: MEDROXYPROGESTERONE ACETATE
     Indication: HAEMORRHAGE
     Dosage: 20 MG (2 TABLETS OF 10 MG), 1X/DAY
     Route: 048
     Dates: start: 20210524
  4. DICLOFENAC [Concomitant]
     Active Substance: DICLOFENAC
     Dosage: 50 MG 1 X1?3 VB
     Route: 048
     Dates: start: 20210508
  5. DUROFERON [Concomitant]
     Active Substance: FERROUS SULFATE
     Dosage: 100 MG 1X1
     Route: 048
  6. CYKLONOVA [Suspect]
     Active Substance: TRANEXAMIC ACID
     Indication: LEIOMYOMA
  7. COMIRNATY [Concomitant]
     Active Substance: TOZINAMERAN
     Dosage: DOSE 2, SINGLE
     Route: 030
     Dates: start: 20210629, end: 20210629
  8. CYKLONOVA [Suspect]
     Active Substance: TRANEXAMIC ACID
     Indication: VAGINAL HAEMORRHAGE
     Dosage: 500 MG 1?2 VB (SINGLE PRESCRIPTION 2X4)
     Route: 048
     Dates: start: 20210826, end: 20210830

REACTIONS (2)
  - Cerebral ischaemia [Recovering/Resolving]
  - Off label use [Unknown]

NARRATIVE: CASE EVENT DATE: 20210524
